FAERS Safety Report 8229360-0 (Version None)
Quarter: 2012Q1

REPORT INFORMATION
  Report Type: 
  Country: None (occurrence: None)
  Receive Date: 20120322
  Receipt Date: 20120315
  Transmission Date: 20120608
  Serious: Yes (Hospitalization, Other)
  Sender: FDA-Public Use
  Company Number: US-ABBOTT-12P-163-0914553-00

PATIENT
  Age: 53 Year
  Sex: Male

DRUGS (13)
  1. HUMIRA [Suspect]
     Indication: PSORIATIC ARTHROPATHY
     Dates: start: 20100615, end: 20101201
  2. NEBULIZER [Concomitant]
     Indication: ASTHMA
  3. MORPHINE SULFATE [Concomitant]
     Indication: PAIN
  4. HUMIRA [Suspect]
     Dates: start: 20111213
  5. PREDNISONE TAB [Suspect]
     Indication: PAIN
     Dates: start: 20110101, end: 20110101
  6. NOVOLOG [Concomitant]
     Indication: PRODUCT USED FOR UNKNOWN INDICATION
  7. VANOF [Concomitant]
     Indication: RASH
  8. HUMIRA [Suspect]
     Dates: start: 20110601
  9. LISINOPRIL [Concomitant]
     Indication: HYPERTENSION
     Dosage: DAILY
  10. LANCET INSULIN [Concomitant]
     Indication: PRODUCT USED FOR UNKNOWN INDICATION
     Dosage: AT BEDTIME
  11. NIASPAN [Concomitant]
     Indication: BLOOD CHOLESTEROL
     Dosage: DAILY
  12. PRILOSEC [Concomitant]
     Indication: GASTROOESOPHAGEAL REFLUX DISEASE
     Dosage: DAILY
  13. ALBUTEROL [Concomitant]
     Indication: ASTHMA

REACTIONS (20)
  - RASH PAPULAR [None]
  - PSORIATIC ARTHROPATHY [None]
  - FURUNCLE [None]
  - ABSCESS LIMB [None]
  - TOOTH INFECTION [None]
  - DIABETES MELLITUS INADEQUATE CONTROL [None]
  - MALAISE [None]
  - PAIN OF SKIN [None]
  - ARTHROPATHY [None]
  - PAIN [None]
  - NAIL DISCOLOURATION [None]
  - SKIN DISORDER [None]
  - ONYCHOMADESIS [None]
  - ALOPECIA [None]
  - BLOOD GLUCOSE INCREASED [None]
  - RASH PRURITIC [None]
  - HYPOAESTHESIA [None]
  - PARAESTHESIA [None]
  - PYREXIA [None]
  - SKIN LESION [None]
